FAERS Safety Report 14774499 (Version 13)
Quarter: 2022Q2

REPORT INFORMATION
  Report Type: Report from Study
  Country: BR (occurrence: BR)
  Receive Date: 20180418
  Receipt Date: 20220415
  Transmission Date: 20220721
  Serious: Yes (Other)
  Sender: FDA-Public Use
  Company Number: PHHY2017BR190792

PATIENT
  Age: 44 Year
  Sex: Female
  Weight: 57 kg

DRUGS (25)
  1. COSENTYX [Suspect]
     Active Substance: SECUKINUMAB
     Indication: Ankylosing spondylitis
     Dosage: 150 MG, QW
     Route: 058
     Dates: start: 20171103
  2. COSENTYX [Suspect]
     Active Substance: SECUKINUMAB
     Indication: Sacroiliitis
     Dosage: 150 MG, QW
     Route: 058
     Dates: start: 20171110
  3. COSENTYX [Suspect]
     Active Substance: SECUKINUMAB
     Indication: Enthesopathy
     Dosage: 150 MG, QW
     Route: 058
     Dates: start: 20171117
  4. COSENTYX [Suspect]
     Active Substance: SECUKINUMAB
     Dosage: 150 MG, QW
     Route: 058
     Dates: start: 20171124
  5. COSENTYX [Suspect]
     Active Substance: SECUKINUMAB
     Dosage: 150 MG, QMO
     Route: 058
     Dates: start: 20171201
  6. COSENTYX [Suspect]
     Active Substance: SECUKINUMAB
     Dosage: UNK
     Route: 065
     Dates: start: 20180124
  7. COSENTYX [Suspect]
     Active Substance: SECUKINUMAB
     Dosage: 1 DF, QMO (8 MONTHS AGO)
     Route: 058
  8. COSENTYX [Suspect]
     Active Substance: SECUKINUMAB
     Dosage: 150 MG, UNKNOWN
     Route: 058
     Dates: end: 201907
  9. COSENTYX [Suspect]
     Active Substance: SECUKINUMAB
     Dosage: UNK (1 AMPOULE EVERY 12 HR)
     Route: 058
  10. COSENTYX [Suspect]
     Active Substance: SECUKINUMAB
     Dosage: UNK (1 AMPOULE EVERY 15 DAYS)
     Route: 058
  11. COSENTYX [Suspect]
     Active Substance: SECUKINUMAB
     Dosage: 150 MG, UNKNOWN
     Route: 065
  12. COSENTYX [Suspect]
     Active Substance: SECUKINUMAB
     Dosage: 150 MG, QMO
     Route: 065
  13. COSENTYX [Suspect]
     Active Substance: SECUKINUMAB
     Dosage: 150 MG, QW
     Route: 058
     Dates: end: 20190824
  14. GABAPENTIN [Suspect]
     Active Substance: GABAPENTIN
     Indication: Pain
     Dosage: 400 MG (EVERY 8 HOURS)
     Route: 065
  15. METHOTREXATE [Suspect]
     Active Substance: METHOTREXATE
     Indication: Product used for unknown indication
     Dosage: UNK
     Route: 065
  16. DULOXETINE HYDROCHLORIDE [Suspect]
     Active Substance: DULOXETINE HYDROCHLORIDE
     Indication: Product used for unknown indication
     Dosage: UNK
     Route: 065
  17. RANITIDINE [Concomitant]
     Active Substance: RANITIDINE
     Indication: Product used for unknown indication
     Dosage: UNK
     Route: 065
  18. DULOXETINE HYDROCHLORIDE [Concomitant]
     Active Substance: DULOXETINE HYDROCHLORIDE
     Indication: Anxiety
     Dosage: 1 DF, QD
     Route: 048
  19. DESINFLEX [Concomitant]
     Indication: Product used for unknown indication
     Dosage: UNK
     Route: 065
  20. TOPIRAMATE [Concomitant]
     Active Substance: TOPIRAMATE
     Indication: Brain malformation
     Dosage: 1 DF, QD
     Route: 048
  21. CALCIUM CARBONATE\CHOLECALCIFEROL [Concomitant]
     Active Substance: CALCIUM CARBONATE\CHOLECALCIFEROL
     Indication: Product used for unknown indication
     Dosage: UNK
     Route: 065
  22. CYCLOBENZAPRINE [Concomitant]
     Active Substance: CYCLOBENZAPRINE
     Indication: Product used for unknown indication
     Dosage: UNK
     Route: 065
  23. METHOTREXATE [Concomitant]
     Active Substance: METHOTREXATE
     Indication: Product used for unknown indication
     Dosage: UNK
     Route: 065
  24. TARGIFOR [Concomitant]
     Indication: Product used for unknown indication
     Dosage: UNK
     Route: 065
  25. VITAMIN D [Concomitant]
     Active Substance: VITAMIN D NOS
     Indication: Supplementation therapy
     Dosage: 1 DF, QW
     Route: 048

REACTIONS (56)
  - Arteriovenous malformation [Not Recovered/Not Resolved]
  - Poisoning [Unknown]
  - Arthralgia [Not Recovered/Not Resolved]
  - Vomiting [Recovering/Resolving]
  - Asthenia [Recovering/Resolving]
  - Neck pain [Not Recovered/Not Resolved]
  - Headache [Unknown]
  - Diarrhoea [Recovering/Resolving]
  - Fear [Unknown]
  - Dizziness [Recovered/Resolved]
  - Weight fluctuation [Unknown]
  - Sinusitis [Recovered/Resolved]
  - Weight increased [Unknown]
  - Product supply issue [Unknown]
  - Pollakiuria [Recovering/Resolving]
  - Swelling [Unknown]
  - Discomfort [Unknown]
  - Diplopia [Recovering/Resolving]
  - Tremor [Recovering/Resolving]
  - Malaise [Recovering/Resolving]
  - Alopecia [Unknown]
  - Fatigue [Unknown]
  - Fibromyalgia [Unknown]
  - Memory impairment [Not Recovered/Not Resolved]
  - Joint stiffness [Not Recovered/Not Resolved]
  - Plantar fasciitis [Unknown]
  - Gait disturbance [Not Recovered/Not Resolved]
  - Foot fracture [Unknown]
  - Speech disorder [Unknown]
  - Muscle strain [Not Recovered/Not Resolved]
  - Pelvic pain [Unknown]
  - Psoriasis [Unknown]
  - Anxiety [Unknown]
  - Sleep paralysis [Unknown]
  - Insomnia [Unknown]
  - Spinal osteoarthritis [Not Recovered/Not Resolved]
  - Back pain [Not Recovered/Not Resolved]
  - Drug ineffective [Not Recovered/Not Resolved]
  - Therapeutic response decreased [Unknown]
  - Product use issue [Unknown]
  - Sleep disorder [Recovering/Resolving]
  - Pain [Unknown]
  - Musculoskeletal stiffness [Not Recovered/Not Resolved]
  - Condition aggravated [Not Recovered/Not Resolved]
  - Musculoskeletal discomfort [Not Recovered/Not Resolved]
  - Sacral pain [Not Recovered/Not Resolved]
  - Osteoarthritis [Not Recovered/Not Resolved]
  - Groin pain [Unknown]
  - Inflammation [Not Recovered/Not Resolved]
  - Sacroiliitis [Not Recovered/Not Resolved]
  - Chest pain [Not Recovered/Not Resolved]
  - Muscle rigidity [Unknown]
  - Quality of life decreased [Unknown]
  - Product storage error [Unknown]
  - Incorrect product formulation administered [Unknown]
  - Inappropriate schedule of product administration [Recovered/Resolved]

NARRATIVE: CASE EVENT DATE: 20171103
